FAERS Safety Report 9061659 (Version 5)
Quarter: 2014Q3

REPORT INFORMATION
  Report Type: Spontaneous
  Country: US (occurrence: None)
  Receive Date: 20120907
  Receipt Date: 20140701
  Transmission Date: 20150326
  Serious: Yes (Hospitalization, Other)
  Sender: FDA-Public Use
  Company Number: ADR-2012-01587

PATIENT
  Sex: Female

DRUGS (2)
  1. LIORESAL [Suspect]
     Active Substance: BACLOFEN
  2. LIORESAL [Suspect]
     Active Substance: BACLOFEN
     Indication: MUSCLE SPASTICITY

REACTIONS (17)
  - Burning sensation [None]
  - Urinary incontinence [None]
  - Drug effect increased [None]
  - Wrong drug administered [None]
  - Feeling abnormal [None]
  - Frustration [None]
  - Nerve injury [None]
  - Pollakiuria [None]
  - Skin haemorrhage [None]
  - Scratch [None]
  - Muscle spasticity [None]
  - Paralysis [None]
  - Pain [None]
  - Post procedural complication [None]
  - Pruritus [None]
  - Hot flush [None]
  - Autoimmune thyroiditis [None]
